FAERS Safety Report 7398868-2 (Version None)
Quarter: 2011Q2

REPORT INFORMATION
  Report Type: 
  Country: None (occurrence: None)
  Receive Date: 20110407
  Receipt Date: 20101025
  Transmission Date: 20111010
  Serious: Yes (Hospitalization)
  Sender: FDA-Public Use
  Company Number: FR-BAYER-2011-013872

PATIENT
  Age: 72 Year
  Sex: Male

DRUGS (16)
  1. SORAFENIB (RAF KINASE INHIBITOR) [Suspect]
     Indication: HEPATIC NEOPLASM MALIGNANT
     Dosage: 400 MG, BID
     Route: 048
     Dates: start: 20100520, end: 20101124
  2. PRAVASTATIN [Concomitant]
     Indication: DYSLIPIDAEMIA
     Dosage: 40 MG, QD
     Dates: start: 20000101
  3. KARDEGIC [Concomitant]
     Indication: BACK PAIN
     Dosage: 75 MG, QD
     Dates: start: 20100101
  4. LANSOPRAZOLE [Concomitant]
     Indication: DYSPEPSIA
     Dosage: 30 MG, QD
     Dates: start: 20100101
  5. REPAGLINIDE [Concomitant]
     Indication: DIABETES MELLITUS
     Dosage: 4 MG, TID
     Dates: start: 20070101
  6. INSULIN HUMAN [Concomitant]
     Indication: DIABETES MELLITUS
     Dosage: 29 U, BID
     Dates: start: 20070101, end: 20100602
  7. ULTRACET [Concomitant]
     Indication: PAIN
     Dosage: 37.5 MG, BID
     Dates: start: 20100823, end: 20101003
  8. LOPERAMIDE HYDROCHLORIDE [Concomitant]
     Indication: DIARRHOEA
     Dosage: 2 DOSAGE FORMS, AS REQUIRED
     Dates: start: 20100527
  9. PANADEINE CO [Concomitant]
     Indication: BACK PAIN
     Dosage: UNK
     Dates: start: 20100529, end: 20100822
  10. INSULIN GLARGINE [Concomitant]
     Indication: DIABETES MELLITUS
     Dosage: 3 TO 4 UNITS TID
     Dates: start: 20101001
  11. LACTULOSE [Concomitant]
     Indication: HEPATIC ENCEPHALOPATHY
     Dosage: 6 TABLETS (2 TABLETS THREE TIMES DAILY)
     Dates: start: 20101001
  12. ACETAMINOPHEN WITH PROPOXYPHENE HCL TAB [Concomitant]
     Indication: BACK PAIN
     Dosage: UNK
     Dates: start: 20101004
  13. METFORMIN HCL [Concomitant]
     Indication: DIABETES MELLITUS
     Dosage: 850 MG, TID
     Dates: start: 20000101, end: 20100926
  14. INSULIN HUMAN [Concomitant]
     Dosage: 25 U, BID
     Dates: start: 20100603, end: 20101001
  15. ISRADIPINE [Concomitant]
     Indication: HYPERTENSION
     Dosage: 5 (5 ONCE DAILY)
     Dates: start: 20100521
  16. DEXERYL [GLYCEROL,PARAFFIN, LIQUID,WHITE SOFT PARAFFIN] [Concomitant]
     Indication: PROPHYLAXIS
     Dosage: 2 DOSAGE FORMS (1 DOSAGE FORM TWICE DAILY)
     Dates: start: 20100520

REACTIONS (1)
  - HEPATIC ENCEPHALOPATHY [None]
